FAERS Safety Report 14454996 (Version 2)
Quarter: 2018Q2

REPORT INFORMATION
  Report Type: Spontaneous
  Country: US (occurrence: US)
  Receive Date: 20180129
  Receipt Date: 20180612
  Transmission Date: 20180711
  Serious: Yes (Other)
  Sender: FDA-Public Use
  Company Number: US-DSJP-DSU-2017-146752

PATIENT

DRUGS (1)
  1. BENICAR [Suspect]
     Active Substance: OLMESARTAN MEDOXOMIL
     Indication: HYPERTENSION
     Dosage: 20 MG, QD
     Route: 048
     Dates: start: 20100216, end: 20141230

REACTIONS (5)
  - Enteritis infectious [Recovering/Resolving]
  - Rectal haemorrhage [Unknown]
  - Gastrooesophageal reflux disease [Unknown]
  - Sprue-like enteropathy [Recovering/Resolving]
  - Irritable bowel syndrome [Recovering/Resolving]

NARRATIVE: CASE EVENT DATE: 2011
